FAERS Safety Report 21141374 (Version 1)
Quarter: 2022Q3

REPORT INFORMATION
  Report Type: Spontaneous
  Country: IN (occurrence: IN)
  Receive Date: 20220728
  Receipt Date: 20220728
  Transmission Date: 20221027
  Serious: Yes (Death, Hospitalization)
  Sender: FDA-Public Use
  Company Number: IN-PFIZER INC-PV202200027367

PATIENT
  Age: 47 Year
  Sex: Male

DRUGS (19)
  1. FELDENE [Suspect]
     Active Substance: PIROXICAM
     Dosage: 20 MG
  2. FELBINAC [Suspect]
     Active Substance: FELBINAC
     Dosage: 1 G
     Route: 042
  3. METHYLPREDNISOLONE [Concomitant]
     Active Substance: METHYLPREDNISOLONE
     Dosage: 40 MG
     Route: 042
  4. METHYLPREDNISOLONE [Concomitant]
     Active Substance: METHYLPREDNISOLONE
     Dosage: 500 MG
     Route: 042
  5. DOXYCYCLINE HYCLATE [Concomitant]
     Active Substance: DOXYCYCLINE HYCLATE
     Dosage: 100 MG
  6. PIPERACILLIN [Concomitant]
     Active Substance: PIPERACILLIN
     Dosage: 2 MG
  7. HYDROXYCHLOROQUINE [Concomitant]
     Active Substance: HYDROXYCHLOROQUINE
     Dosage: 200 MG
  8. IVERMECTIN [Concomitant]
     Active Substance: IVERMECTIN
     Dosage: 0.15 MG
  9. PANTOPRAZOLE [Concomitant]
     Active Substance: PANTOPRAZOLE
     Dosage: UNK
  10. ENOXAPARIN SODIUM [Concomitant]
     Active Substance: ENOXAPARIN SODIUM
     Dosage: UNK
  11. ACETAMINOPHEN [Concomitant]
     Active Substance: ACETAMINOPHEN
     Dosage: UNK
  12. ZINC [Concomitant]
     Active Substance: ZINC
  13. VITAMIN B1 [Concomitant]
     Active Substance: THIAMINE HYDROCHLORIDE
  14. VITAMIN C [Concomitant]
     Active Substance: ASCORBIC ACID
  15. REMDESIVIR [Concomitant]
     Active Substance: REMDESIVIR
  16. ACETYLCYSTEINE [Concomitant]
     Active Substance: ACETYLCYSTEINE
  17. THEOPHYLLINE [Concomitant]
     Active Substance: THEOPHYLLINE
  18. FUROSEMIDE [Concomitant]
     Active Substance: FUROSEMIDE
  19. GUAIFENESIN [Concomitant]
     Active Substance: GUAIFENESIN

REACTIONS (1)
  - COVID-19 [Fatal]
